FAERS Safety Report 9644271 (Version 1)
Quarter: 2013Q4

REPORT INFORMATION
  Report Type: Other
  Country: US (occurrence: US)
  Receive Date: 20131025
  Receipt Date: 20131025
  Transmission Date: 20140711
  Serious: Yes (Other)
  Sender: FDA-Public Use
  Company Number: US-LUPIN PHARMACEUTICALS INC.-2013-01797

PATIENT
  Age: 49 Year
  Sex: Female

DRUGS (11)
  1. PRAVASTATIN [Suspect]
     Indication: POLYNEUROPATHY
     Route: 065
  2. LENALIDOMIDE [Interacting]
     Indication: PLASMA CELL MYELOMA
     Route: 065
     Dates: start: 201107, end: 201208
  3. LENALIDOMIDE [Interacting]
     Route: 065
  4. LENALIDOMIDE [Interacting]
     Route: 065
  5. LENALIDOMIDE [Interacting]
     Route: 065
  6. LENALIDOMIDE [Interacting]
     Route: 065
     Dates: start: 2012, end: 201206
  7. LENALIDOMIDE [Interacting]
     Route: 065
     Dates: start: 201206
  8. LENALIDOMIDE [Interacting]
     Route: 065
     Dates: start: 201208
  9. GABAPENTIN [Interacting]
     Indication: POLYNEUROPATHY
     Route: 065
  10. GABAPENTIN [Interacting]
     Dosage: REDUCED BY 50%
     Route: 065
  11. GABAPENTIN [Interacting]
     Route: 065

REACTIONS (2)
  - Drug interaction [Recovered/Resolved]
  - Rhabdomyolysis [Recovered/Resolved]
